FAERS Safety Report 16724283 (Version 1)
Quarter: 2019Q3

REPORT INFORMATION
  Report Type: Report from Study
  Country: US (occurrence: US)
  Receive Date: 20190821
  Receipt Date: 20190821
  Transmission Date: 20191005
  Serious: Yes (Hospitalization)
  Sender: FDA-Public Use
  Company Number: US-TAIHO ONCOLOGY  INC-EU-2019-02757

PATIENT
  Age: 72 Year
  Sex: Female

DRUGS (1)
  1. LONSURF [Suspect]
     Active Substance: TIPIRACIL HYDROCHLORIDE\TRIFLURIDINE
     Indication: COLON CANCER
     Dosage: CURRENT CYCLE 9. AVELLA FILLED THE MEDICATION ON 24 JANUARY 2019
     Route: 048
     Dates: end: 201908

REACTIONS (1)
  - Gastrooesophageal reflux disease [Recovering/Resolving]

NARRATIVE: CASE EVENT DATE: 20190809
